FAERS Safety Report 18657583 (Version 1)
Quarter: 2020Q4

REPORT INFORMATION
  Report Type: Spontaneous
  Country: ES (occurrence: ES)
  Receive Date: 20201223
  Receipt Date: 20201223
  Transmission Date: 20210114
  Serious: Yes (Life-Threatening, Hospitalization)
  Sender: FDA-Public Use
  Company Number: ES-MYLANLABS-2020M1103226

PATIENT
  Age: 73 Year
  Sex: Male

DRUGS (7)
  1. FORXIGA [Concomitant]
     Active Substance: DAPAGLIFLOZIN
     Indication: TYPE 2 DIABETES MELLITUS
     Dosage: 10 MILLIGRAM, QD,1-0-0-0
     Route: 048
     Dates: start: 20190219, end: 20200720
  2. PRANDIN                            /00882701/ [Concomitant]
     Active Substance: DEFLAZACORT
     Indication: TYPE 2 DIABETES MELLITUS
     Dosage: 1-0-1-0
     Route: 048
     Dates: start: 20150305, end: 20150320
  3. OMEPRAZOL                          /00661201/ [Concomitant]
     Active Substance: OMEPRAZOLE
     Dosage: UNK, QD
     Route: 048
     Dates: start: 20170718, end: 20200720
  4. ACFOL [Concomitant]
     Active Substance: FOLIC ACID
     Dosage: UNK, QD
     Dates: start: 20200625, end: 20200720
  5. TRYPTIZOL [Concomitant]
     Active Substance: AMITRIPTYLINE HYDROCHLORIDE
     Dosage: UNK, QD, 0-0-1-0
     Dates: start: 20190415
  6. METFORMIN [Suspect]
     Active Substance: METFORMIN HYDROCHLORIDE
     Indication: TYPE 2 DIABETES MELLITUS
     Dosage: 2.55 GRAM, QD,TYPE
     Route: 048
     Dates: start: 20160309, end: 20200720
  7. OZEMPIC [Concomitant]
     Active Substance: SEMAGLUTIDE
     Indication: TYPE 2 DIABETES MELLITUS
     Dosage: 1 MILLIGRAM, QW
     Dates: start: 20200419, end: 20200720

REACTIONS (2)
  - Shock [Recovered/Resolved]
  - Lactic acidosis [Recovered/Resolved with Sequelae]

NARRATIVE: CASE EVENT DATE: 20200720
